FAERS Safety Report 4950403-1 (Version None)
Quarter: 2006Q1

REPORT INFORMATION
  Report Type: 
  Country: None (occurrence: None)
  Receive Date: 20060315
  Receipt Date: 20060302
  Transmission Date: 20060701
  Serious: Yes (Other)
  Sender: FDA-Public Use
  Company Number: 2006030516

PATIENT
  Age: 22 Year
  Sex: Female

DRUGS (4)
  1. FLAGYL [Suspect]
     Indication: CAESAREAN SECTION
     Dosage: 1.5 UNIT
     Dates: start: 20050124, end: 20060124
  2. AMPICILLIN [Suspect]
     Indication: CAESAREAN SECTION
     Dosage: 2 GRAM
     Dates: start: 20060124, end: 20060124
  3. LIDOCAINE/EPINEPHRINE (EPINEPHRINE, LIDOCAINE) [Suspect]
     Indication: CAESAREAN SECTION
     Dates: start: 20060124, end: 20060124
  4. FENTANYL [Suspect]
     Indication: CAESAREAN SECTION
     Dates: start: 20060124, end: 20060124

REACTIONS (6)
  - CHEST PAIN [None]
  - DRUG EXPOSURE DURING PREGNANCY [None]
  - DYSPNOEA [None]
  - HYPOTENSION [None]
  - OXYGEN SATURATION DECREASED [None]
  - TACHYCARDIA [None]
